FAERS Safety Report 25776042 (Version 1)
Quarter: 2025Q3

REPORT INFORMATION
  Report Type: Spontaneous
  Country: US (occurrence: US)
  Receive Date: 20250909
  Receipt Date: 20250909
  Transmission Date: 20251021
  Serious: No
  Sender: SANDOZ
  Company Number: US-002147023-NVSC2024US188567

PATIENT
  Sex: Female

DRUGS (2)
  1. KISQALI [Suspect]
     Active Substance: RIBOCICLIB SUCCINATE
     Indication: Product used for unknown indication
     Route: 065
  2. ONDANSETRON [Suspect]
     Active Substance: ONDANSETRON
     Indication: Product used for unknown indication
     Route: 065

REACTIONS (6)
  - Libido decreased [Unknown]
  - Rash erythematous [Unknown]
  - Skin exfoliation [Unknown]
  - Rash [Unknown]
  - Fatigue [Unknown]
  - Visual impairment [Unknown]
